FAERS Safety Report 18454739 (Version 2)
Quarter: 2020Q4

REPORT INFORMATION
  Report Type: Report from Study
  Country: None (occurrence: AU)
  Receive Date: 20201103
  Receipt Date: 20201110
  Transmission Date: 20210114
  Serious: Yes (Hospitalization)
  Sender: FDA-Public Use
  Company Number: AU-ABBVIE-20K-008-3631783-00

PATIENT
  Sex: Male

DRUGS (2)
  1. LUCRIN DEPOT [Suspect]
     Active Substance: LEUPROLIDE ACETATE
     Indication: PROSTATE CANCER
     Dosage: DOSE INCREASED
     Route: 030
  2. LUCRIN DEPOT [Suspect]
     Active Substance: LEUPROLIDE ACETATE
     Route: 030
     Dates: end: 2014

REACTIONS (5)
  - Mobility decreased [Recovering/Resolving]
  - Pain [Recovering/Resolving]
  - Tendon rupture [Recovering/Resolving]
  - Prostatic specific antigen increased [Not Recovered/Not Resolved]
  - Metastatic neoplasm [Not Recovered/Not Resolved]

NARRATIVE: CASE EVENT DATE: 2020
